FAERS Safety Report 6980242-1 (Version None)
Quarter: 2010Q3

REPORT INFORMATION
  Report Type: 
  Country: None (occurrence: None)
  Receive Date: 20100914
  Receipt Date: 20100907
  Transmission Date: 20110219
  Serious: Yes (Hospitalization)
  Sender: FDA-Public Use
  Company Number: SI-BRISTOL-MYERS SQUIBB COMPANY-15259674

PATIENT
  Age: 82 Year
  Sex: Female

DRUGS (3)
  1. METFORMIN HCL [Suspect]
     Dosage: 3X850 MG
  2. DICLOFENAC SODIUM [Interacting]
     Indication: BACK PAIN
     Dosage: 1 DOSAGE FORM = 2X50MG
  3. ENALAPRIL [Interacting]
     Indication: HYPERTENSION
     Dosage: 1 DOSAGE FORM = 2X20MG

REACTIONS (8)
  - BLOOD CREATININE INCREASED [None]
  - BLOOD UREA INCREASED [None]
  - DIARRHOEA [None]
  - DRUG INTERACTION [None]
  - HYPERKALAEMIA [None]
  - METABOLIC ACIDOSIS [None]
  - SYNCOPE [None]
  - VOMITING [None]
